FAERS Safety Report 8922588 (Version 4)
Quarter: 2013Q1

REPORT INFORMATION
  Report Type: Report from Study
  Country: CZ (occurrence: CZ)
  Receive Date: 20121123
  Receipt Date: 20130125
  Transmission Date: 20140127
  Serious: Yes (Death)
  Sender: FDA-Public Use
  Company Number: CZ-PFIZER INC-2012291950

PATIENT
  Age: 61 Year
  Sex: Female
  Weight: 72 kg

DRUGS (3)
  1. TOFACITINIB CITRATE [Suspect]
     Indication: RHEUMATOID ARTHRITIS
     Dosage: 5 MG, 2X/DAY
     Route: 048
     Dates: start: 20110104
  2. IBUPROFEN [Concomitant]
     Indication: RHEUMATOID ARTHRITIS
     Dosage: AS NEEDED
     Route: 048
     Dates: start: 200909
  3. ACIDUM FOLICUM [Concomitant]
     Indication: DRUG TOXICITY PROPHYLAXIS
     Dosage: 10 MG, WEEKLY
     Dates: start: 20110104

REACTIONS (1)
  - Cardiac failure [Fatal]
